FAERS Safety Report 14369774 (Version 1)
Quarter: 2018Q1

REPORT INFORMATION
  Report Type: Report from Study
  Country: US (occurrence: US)
  Receive Date: 20180110
  Receipt Date: 20180110
  Transmission Date: 20180509
  Serious: Yes (Other)
  Sender: FDA-Public Use
  Company Number: US-ROCHE-2049195

PATIENT

DRUGS (4)
  1. BEVACIZUMAB. [Suspect]
     Active Substance: BEVACIZUMAB
     Indication: MALIGNANT GLIOMA
     Route: 065
  2. PEMBROLIZUMAB. [Suspect]
     Active Substance: PEMBROLIZUMAB
     Indication: MALIGNANT GLIOMA
     Route: 065
  3. DEXAMETHASONE. [Suspect]
     Active Substance: DEXAMETHASONE
     Indication: MALIGNANT GLIOMA
     Route: 065
  4. TEMOZOLOMIDE. [Suspect]
     Active Substance: TEMOZOLOMIDE
     Indication: MALIGNANT GLIOMA
     Route: 065

REACTIONS (22)
  - Hypothyroidism [Unknown]
  - Blood bilirubin increased [Unknown]
  - Anaemia [Unknown]
  - Pyrexia [Unknown]
  - Nausea [Unknown]
  - Neutropenia [Unknown]
  - Aspartate aminotransferase increased [Unknown]
  - Myalgia [Unknown]
  - Rash [Unknown]
  - Vomiting [Unknown]
  - Hyperglycaemia [Unknown]
  - Mucosal inflammation [Unknown]
  - Diarrhoea [Unknown]
  - Thrombocytopenia [Unknown]
  - Alanine aminotransferase increased [Unknown]
  - Lipase abnormal [Unknown]
  - Seizure [Unknown]
  - Leukopenia [Unknown]
  - Arthralgia [Unknown]
  - Fatigue [Unknown]
  - Headache [Unknown]
  - Amylase abnormal [Unknown]
